FAERS Safety Report 23670725 (Version 3)
Quarter: 2024Q4

REPORT INFORMATION
  Report Type: Spontaneous
  Country: JP (occurrence: JP)
  Receive Date: 20240326
  Receipt Date: 20241028
  Transmission Date: 20250115
  Serious: Yes (Other)
  Sender: NOVARTIS
  Company Number: JP-002147023-NVSJ2024JP003609

PATIENT
  Age: 67 Year
  Sex: Male

DRUGS (2)
  1. TASIGNA [Suspect]
     Active Substance: NILOTINIB
     Indication: Chronic myeloid leukaemia
     Dosage: 600 MG
     Route: 048
  2. TASIGNA [Suspect]
     Active Substance: NILOTINIB
     Dosage: 400 MG
     Route: 048

REACTIONS (6)
  - Aortic aneurysm [Unknown]
  - Cholelithiasis [Unknown]
  - Pancreatic disorder [Unknown]
  - Hepatic function abnormal [Unknown]
  - Glomerular filtration rate decreased [Unknown]
  - Hypertension [Unknown]
